FAERS Safety Report 10770038 (Version 1)
Quarter: 2015Q1

REPORT INFORMATION
  Report Type: Spontaneous
  Country: TR (occurrence: TR)
  Receive Date: 20150206
  Receipt Date: 20150206
  Transmission Date: 20150721
  Serious: Yes (Other)
  Sender: FDA-Public Use
  Company Number: TR-NOVOPROD-437322

PATIENT
  Sex: Female
  Weight: 3.02 kg

DRUGS (3)
  1. HUMULIN R [Concomitant]
     Active Substance: INSULIN HUMAN
     Indication: GESTATIONAL DIABETES
     Dosage: 6 U, QD
     Route: 064
     Dates: start: 201410, end: 20141222
  2. FERRO SANOL [Concomitant]
     Active Substance: FERROUS SULFATE\GLYCINE
     Indication: MINERAL SUPPLEMENTATION
     Dosage: UNK
     Route: 064
     Dates: start: 201406, end: 20141222
  3. NOVORAPID [Suspect]
     Active Substance: INSULIN ASPART
     Indication: GESTATIONAL DIABETES
     Dosage: 6 U, QD
     Route: 064
     Dates: start: 20140720, end: 201410

REACTIONS (3)
  - Cardiac murmur [Recovering/Resolving]
  - Foetal exposure during pregnancy [Recovered/Resolved]
  - Caesarean section [None]

NARRATIVE: CASE EVENT DATE: 20140720
